FAERS Safety Report 6222894-X (Version None)
Quarter: 2009Q2

REPORT INFORMATION
  Report Type: 
  Country: None (occurrence: None)
  Receive Date: 20090611
  Receipt Date: 20090602
  Transmission Date: 20091009
  Serious: Yes (Other)
  Sender: FDA-Public Use
  Company Number: US-PFIZER INC-2009212372

PATIENT
  Sex: Female

DRUGS (2)
  1. CHANTIX [Suspect]
     Indication: SMOKING CESSATION THERAPY
     Dosage: 1 MG, 2X/DAY
     Route: 048
     Dates: start: 20090417, end: 20090504
  2. METHOTREXATE [Concomitant]
     Dosage: UNK

REACTIONS (2)
  - ANAPHYLACTOID REACTION [None]
  - RASH MACULO-PAPULAR [None]
